FAERS Safety Report 5677372-3 (Version None)
Quarter: 2008Q1

REPORT INFORMATION
  Report Type: 
  Country: None (occurrence: None)
  Receive Date: 20080320
  Receipt Date: 20080320
  Transmission Date: 20080703
  Serious: Yes (Life-Threatening)
  Sender: FDA-Public Use
  Company Number: None

PATIENT
  Age: 103 Year
  Sex: Female
  Weight: 36.2878 kg

DRUGS (2)
  1. SYNTHROID [Suspect]
     Indication: BLOOD THYROID STIMULATING HORMONE INCREASED
     Dates: start: 20040201, end: 20080321
  2. SYNTHROID [Suspect]
     Indication: HYPOTHYROIDISM
     Dates: start: 20040201, end: 20080321

REACTIONS (4)
  - AREFLEXIA [None]
  - DEHYDRATION [None]
  - DYSPHAGIA [None]
  - MALNUTRITION [None]
